FAERS Safety Report 8245132-5 (Version None)
Quarter: 2012Q1

REPORT INFORMATION
  Report Type: 
  Country: None (occurrence: None)
  Receive Date: 20120329
  Receipt Date: 20120326
  Transmission Date: 20120608
  Serious: Yes (Hospitalization)
  Sender: FDA-Public Use
  Company Number: FR-FRI-1000029405

PATIENT
  Sex: Male

DRUGS (12)
  1. TRIHEXYPHENIDYL HYDROCHLORIDE [Concomitant]
     Route: 048
  2. TERCIAN [Concomitant]
     Route: 048
  3. NEBIVOLOL [Suspect]
     Dosage: 2.5 MG
     Dates: end: 20120311
  4. ANAFRANIL [Concomitant]
     Route: 048
  5. TRIVASTAL [Concomitant]
     Route: 048
  6. DEPAKOTE [Concomitant]
     Route: 048
  7. IMOVANE [Concomitant]
     Route: 048
  8. ZYPREXA [Concomitant]
     Route: 048
  9. LERCANIDIPINE [Concomitant]
     Route: 048
  10. FOSINOPRIL SODIUM [Concomitant]
     Route: 048
  11. VALIUM [Concomitant]
     Route: 048
  12. FENOFIBRATE [Concomitant]
     Route: 048

REACTIONS (2)
  - BRADYCARDIA [None]
  - MALAISE [None]
